FAERS Safety Report 5158952-0 (Version None)
Quarter: 2006Q4

REPORT INFORMATION
  Report Type: 
  Country: None (occurrence: None)
  Receive Date: 20061128
  Receipt Date: 20061121
  Transmission Date: 20070319
  Serious: Yes (Other)
  Sender: FDA-Public Use
  Company Number: US-BRISTOL-MYERS SQUIBB COMPANY-13586177

PATIENT
  Age: 46 Year
  Sex: Female

DRUGS (5)
  1. CISPLATIN [Suspect]
  2. GRANISETRON [Concomitant]
  3. DIPHENHYDRAMINE HCL [Concomitant]
  4. DEXAMETHASONE 4MG TAB [Concomitant]
  5. FAMOTIDINE [Concomitant]

REACTIONS (1)
  - ABDOMINAL DISTENSION [None]
